FAERS Safety Report 8448055-1 (Version None)
Quarter: 2012Q2

REPORT INFORMATION
  Report Type: 
  Country: None (occurrence: None)
  Receive Date: 20120619
  Receipt Date: 20120612
  Transmission Date: 20120825
  Serious: Yes (Disabling, Other)
  Sender: FDA-Public Use
  Company Number: CA-PFIZER INC-2012110775

PATIENT
  Age: 61 Year
  Sex: Male
  Weight: 58.3 kg

DRUGS (2)
  1. LIPITOR [Suspect]
     Dosage: 80 MG, 1X/DAY
     Dates: start: 20110101, end: 20120101
  2. TWYNSTA [Suspect]
     Dosage: UNK
     Dates: start: 20111101

REACTIONS (2)
  - RHABDOMYOLYSIS [None]
  - BLOOD THYROID STIMULATING HORMONE DECREASED [None]
